FAERS Safety Report 17849179 (Version 2)
Quarter: 2022Q1

REPORT INFORMATION
  Report Type: Report from Study
  Country: US (occurrence: US)
  Receive Date: 20200602
  Receipt Date: 20220316
  Transmission Date: 20220423
  Serious: No
  Sender: FDA-Public Use
  Company Number: US-ACADIA PHARMACEUTICALS INC.-ACA-2020-PIM-001540

PATIENT
  Sex: Male

DRUGS (10)
  1. NUPLAZID [Suspect]
     Active Substance: PIMAVANSERIN TARTRATE
     Indication: Parkinson^s disease
     Dosage: 34 MILLIGRAM, QD
     Route: 048
     Dates: start: 202003
  2. PRAMIPEXOLE DIHYDROCHLORIDE [Suspect]
     Active Substance: PRAMIPEXOLE DIHYDROCHLORIDE
  3. CARBIDOPA\LEVODOPA [Concomitant]
     Active Substance: CARBIDOPA\LEVODOPA
     Indication: Product used for unknown indication
  4. SENNA [Concomitant]
     Active Substance: SENNA LEAF\SENNOSIDES\SENNOSIDES A AND B
  5. VITAMIN C [Concomitant]
     Active Substance: ASCORBIC ACID
  6. MELATONIN [Concomitant]
     Active Substance: MELATONIN
  7. HYDROCORTISONE [Concomitant]
     Active Substance: HYDROCORTISONE
  8. CIALIS [Concomitant]
     Active Substance: TADALAFIL
  9. ACETAMINOPHEN [Concomitant]
     Active Substance: ACETAMINOPHEN
  10. DIMENHYDRINATE [Concomitant]
     Active Substance: DIMENHYDRINATE

REACTIONS (8)
  - Diplopia [Unknown]
  - Abdominal discomfort [Unknown]
  - Salivary hypersecretion [Unknown]
  - Gastrooesophageal reflux disease [Unknown]
  - Hallucination [Unknown]
  - Confusional state [Unknown]
  - Nausea [Unknown]
  - Constipation [Unknown]

NARRATIVE: CASE EVENT DATE: 20200101
